FAERS Safety Report 8875483 (Version 1)
Quarter: 2012Q4

REPORT INFORMATION
  Report Type: Report from Study
  Country: US (occurrence: US)
  Receive Date: 20121029
  Receipt Date: 20121029
  Transmission Date: 20130627
  Serious: Yes (Hospitalization)
  Sender: FDA-Public Use
  Company Number: US-TEVA-366623USA

PATIENT
  Age: 26 Year
  Sex: Female
  Weight: 69 kg

DRUGS (7)
  1. FLUOROURACIL [Suspect]
     Indication: COLON CANCER
     Dosage: 400 mg/m2, Q2W
     Route: 042
     Dates: start: 20120612, end: 20120925
  2. FLUOROURACIL [Suspect]
     Dosage: 2400 mg/m2, Q2W
     Route: 040
     Dates: start: 20120612, end: 20120925
  3. OXALIPLATIN [Suspect]
     Indication: COLON CANCER
     Dosage: 85 mg/m2, Q2W
     Route: 042
     Dates: start: 20120612, end: 20120925
  4. FOLINIC ACID [Suspect]
     Indication: COLON CANCER
     Dosage: 32 mg, Q2W
     Route: 042
     Dates: start: 20120612, end: 20120925
  5. BEVACIZUMAB [Suspect]
     Indication: COLON CANCER
     Dosage: 5 mg/kg, Q2W
     Route: 042
     Dates: start: 20120612, end: 20120925
  6. LEVAQUIN [Concomitant]
     Dates: start: 20120904, end: 20120908
  7. NASACORT AQ [Concomitant]
     Dates: start: 20120821

REACTIONS (1)
  - Pneumonia [Recovered/Resolved]
